FAERS Safety Report 11749711 (Version 2)
Quarter: 2016Q1

REPORT INFORMATION
  Report Type: Report from Study
  Country: US (occurrence: US)
  Receive Date: 20151118
  Receipt Date: 20160119
  Transmission Date: 20160525
  Serious: Yes (Hospitalization)
  Sender: FDA-Public Use
  Company Number: PHHO2015US019133

PATIENT
  Age: 65 Year
  Sex: Female
  Weight: 83.9 kg

DRUGS (10)
  1. SPIRONOLACTONE. [Suspect]
     Active Substance: SPIRONOLACTONE
     Dosage: 25 MG, QD
     Route: 065
     Dates: start: 20151103, end: 20151105
  2. CARVEDILOL. [Suspect]
     Active Substance: CARVEDILOL
     Indication: CARDIAC FAILURE
     Dosage: 6.25 MG, BID
     Route: 065
     Dates: start: 20150616, end: 20151105
  3. CARVEDILOL. [Suspect]
     Active Substance: CARVEDILOL
     Dosage: UNK
     Route: 065
     Dates: start: 20151106
  4. BLINDED LCZ696 [Suspect]
     Active Substance: SACUBITRIL
     Indication: CARDIAC FAILURE CHRONIC
     Dosage: CODE NOT BROKEN
     Route: 048
     Dates: start: 20150714, end: 20151105
  5. BLINDED LCZ696 [Suspect]
     Active Substance: SACUBITRIL
     Dosage: CODE NOT BROKEN
     Route: 048
     Dates: start: 20151106
  6. BLINDED NO TREATMENT RECEIVED [Suspect]
     Active Substance: INVESTIGATIONAL PRODUCT
     Indication: CARDIAC FAILURE CHRONIC
     Dosage: CODE NOT BROKEN
     Route: 048
     Dates: start: 20150714, end: 20151105
  7. BLINDED NO TREATMENT RECEIVED [Suspect]
     Active Substance: INVESTIGATIONAL PRODUCT
     Dosage: CODE NOT BROKEN
     Route: 048
     Dates: start: 20151106
  8. DIOVAN [Suspect]
     Active Substance: VALSARTAN
     Dosage: CODE NOT BROKEN
     Route: 048
     Dates: start: 20151106
  9. SPIRONOLACTONE. [Suspect]
     Active Substance: SPIRONOLACTONE
     Indication: CARDIAC FAILURE
     Dosage: 12.5 MG, QD
     Route: 065
  10. DIOVAN [Suspect]
     Active Substance: VALSARTAN
     Indication: CARDIAC FAILURE CHRONIC
     Dosage: CODE NOT BROKEN
     Route: 048
     Dates: start: 20150714, end: 20151105

REACTIONS (1)
  - Hypotension [Not Recovered/Not Resolved]

NARRATIVE: CASE EVENT DATE: 20151104
